FAERS Safety Report 8759096 (Version 1)
Quarter: 2012Q4

REPORT INFORMATION
  Report Type: 
  Country: US (occurrence: US)
  Receive Date: 20120829
  Receipt Date: 20120829
  Transmission Date: 20130627
  Serious: Yes (Hospitalization)
  Sender: FDA-Public Use
  Company Number: US-B.I. PHARMACEUTICALS,INC./RIDGEFIELD-2012-BP-20547BP

PATIENT
  Sex: Male

DRUGS (4)
  1. PRADAXA [Suspect]
     Indication: ATRIAL FIBRILLATION
     Dosage: 300 mg
     Route: 048
     Dates: start: 201104
  2. CARVEDILOL [Concomitant]
     Indication: HYPERTENSION
  3. MEDICATION NOT FURTHER SPECIFIED [Concomitant]
     Indication: CARDIAC DISORDER
  4. MEDICATION NOT FURTHER SPECIFIED [Concomitant]
     Indication: DIABETES MELLITUS

REACTIONS (2)
  - Atrial fibrillation [Recovered/Resolved]
  - Transient ischaemic attack [Recovered/Resolved]
